FAERS Safety Report 4309583-3 (Version None)
Quarter: 2004Q1

REPORT INFORMATION
  Report Type: 
  Country: None (occurrence: None)
  Receive Date: 20040301
  Receipt Date: 20040223
  Transmission Date: 20041129
  Serious: Yes (Life-Threatening)
  Sender: FDA-Public Use
  Company Number: 2003167205JP

PATIENT
  Age: 61 Year
  Sex: Female

DRUGS (4)
  1. CAMPTOSAR [Suspect]
     Indication: GASTRIC CANCER
     Dosage: 30 MG, WEEKLY, D 1-3, IV DRIP
     Route: 041
     Dates: start: 20030513, end: 20030515
  2. CAMPTOSAR [Suspect]
     Indication: GASTRIC CANCER
     Dosage: 30 MG, WEEKLY, D 1-3, IV DRIP
     Route: 041
     Dates: start: 20030520, end: 20030522
  3. PLATELETS [Concomitant]
  4. PLASMA [Concomitant]

REACTIONS (13)
  - BONE MARROW DEPRESSION [None]
  - DIARRHOEA [None]
  - DRUG INEFFECTIVE [None]
  - ERYTHROPENIA [None]
  - HEART RATE DECREASED [None]
  - LEUKOPENIA [None]
  - PLATELET COUNT DECREASED [None]
  - PNEUMONIA ASPIRATION [None]
  - PYREXIA [None]
  - RESPIRATORY ARREST [None]
  - VENTRICULAR FIBRILLATION [None]
  - VENTRICULAR TACHYCARDIA [None]
  - VOMITING [None]
